FAERS Safety Report 18363510 (Version 5)
Quarter: 2022Q1

REPORT INFORMATION
  Report Type: Spontaneous
  Country: IT (occurrence: IT)
  Receive Date: 20201008
  Receipt Date: 20220224
  Transmission Date: 20220424
  Serious: Yes (Death, Hospitalization, Other)
  Sender: FDA-Public Use
  Company Number: IT-002147023-NVSC2020IT269006

PATIENT

DRUGS (8)
  1. RUXOLITINIB [Suspect]
     Active Substance: RUXOLITINIB
     Indication: Myelofibrosis
     Dosage: 20 MG, BID
     Route: 065
     Dates: start: 20180612, end: 20200113
  2. RUXOLITINIB [Suspect]
     Active Substance: RUXOLITINIB
     Dosage: 25 MG, BID
     Route: 065
     Dates: start: 20200226, end: 20200730
  3. PANTOPRAZOLE SODIUM [Concomitant]
     Active Substance: PANTOPRAZOLE SODIUM
     Indication: Product used for unknown indication
     Dosage: 1 DF, QD
     Route: 065
  4. ESCITALOPRAM OXALATE [Concomitant]
     Active Substance: ESCITALOPRAM OXALATE
     Indication: Product used for unknown indication
     Dosage: 1 DF, QD
     Route: 065
  5. LASIX [Concomitant]
     Active Substance: FUROSEMIDE
     Indication: Product used for unknown indication
     Dosage: 1 DF, QD
     Route: 065
  6. ASPIRIN [Concomitant]
     Active Substance: ASPIRIN
     Indication: Product used for unknown indication
     Dosage: 1 DF, QD
     Route: 065
  7. FEBUXOSTAT [Concomitant]
     Active Substance: FEBUXOSTAT
     Indication: Product used for unknown indication
     Dosage: 0.5 DF, QD
     Route: 065
  8. CANRENOATE POTASSIUM [Concomitant]
     Active Substance: CANRENOATE POTASSIUM
     Indication: Product used for unknown indication
     Dosage: 1 DF, QD
     Route: 065

REACTIONS (29)
  - Splenomegaly [Unknown]
  - Alanine aminotransferase decreased [Unknown]
  - Blood albumin decreased [Unknown]
  - Basophil count increased [Unknown]
  - Blood bilirubin increased [Unknown]
  - Electrocardiogram abnormal [Unknown]
  - Eosinophil count decreased [Unknown]
  - Hyperhomocysteinaemia [Unknown]
  - Intertrigo [Unknown]
  - Abdominal lymphadenopathy [Unknown]
  - Pelvic fracture [Unknown]
  - Bone lesion [Unknown]
  - Lymphangitis [Unknown]
  - Lymphocyte count decreased [Unknown]
  - Monocyte count increased [Unknown]
  - Lymphadenopathy [Unknown]
  - Retroperitoneal lymphadenopathy [Unknown]
  - Neutrophil count increased [Unknown]
  - Osteolysis [Unknown]
  - Angiomyolipoma [Unknown]
  - Red cell distribution width increased [Unknown]
  - Bone density decreased [Unknown]
  - Second primary malignancy [Fatal]
  - Transitional cell carcinoma [Fatal]
  - Osteoarthritis [Unknown]
  - Blood sodium decreased [Unknown]
  - Hepatic steatosis [Unknown]
  - Lymphoproliferative disorder [Unknown]
  - White blood cell count increased [Unknown]

NARRATIVE: CASE EVENT DATE: 20200501
